FAERS Safety Report 16897389 (Version 1)
Quarter: 2019Q4

REPORT INFORMATION
  Report Type: Spontaneous
  Country: US (occurrence: US)
  Receive Date: 20191009
  Receipt Date: 20191009
  Transmission Date: 20200122
  Serious: Yes (Other)
  Sender: FDA-Public Use
  Company Number: US-ASTELLAS-2019US036342

PATIENT
  Sex: Male

DRUGS (2)
  1. MIRALAX [Suspect]
     Active Substance: POLYETHYLENE GLYCOL 3350
     Indication: CONSTIPATION
     Dosage: ONE HALF DOSE, ONCE DAILY
     Route: 065
  2. MYRBETRIQ [Suspect]
     Active Substance: MIRABEGRON
     Indication: PRODUCT USED FOR UNKNOWN INDICATION
     Route: 065
     Dates: start: 201909

REACTIONS (8)
  - Drug ineffective [Unknown]
  - Neurogenic bladder [Unknown]
  - Insomnia [Recovering/Resolving]
  - Nocturia [Recovering/Resolving]
  - Back pain [Unknown]
  - Diarrhoea [Recovering/Resolving]
  - Pollakiuria [Unknown]
  - Drug interaction [Unknown]
